FAERS Safety Report 23379402 (Version 1)
Quarter: 2024Q1

REPORT INFORMATION
  Report Type: Spontaneous
  Country: CN (occurrence: CN)
  Receive Date: 20240108
  Receipt Date: 20240108
  Transmission Date: 20240410
  Serious: Yes (Other)
  Sender: FDA-Public Use
  Company Number: CN-GUERBET / FUNDTRIP PHARMACEUTICALS-CN-20240009

PATIENT
  Age: 41 Year
  Sex: Male

DRUGS (1)
  1. IOVERSOL [Suspect]
     Active Substance: IOVERSOL
     Indication: Angiogram cerebral

REACTIONS (3)
  - Contrast encephalopathy [Recovered/Resolved]
  - Spinal cord injury [Recovered/Resolved]
  - Overdose [Recovered/Resolved]
